FAERS Safety Report 14343590 (Version 14)
Quarter: 2021Q3

REPORT INFORMATION
  Report Type: Spontaneous
  Country: GB (occurrence: GB)
  Receive Date: 20180102
  Receipt Date: 20210804
  Transmission Date: 20211014
  Serious: Yes (Other)
  Sender: FDA-Public Use
  Company Number: GB-PFIZER INC-2017552573

PATIENT
  Age: 73 Year
  Sex: Female
  Weight: 50.2 kg

DRUGS (26)
  1. BACTERIOSTATIC SODIUM CHLORIDE [Suspect]
     Active Substance: SODIUM CHLORIDE
     Dosage: UNK (SOLUTION)
     Route: 041
     Dates: start: 20171107, end: 201711
  2. VELCADE [Suspect]
     Active Substance: BORTEZOMIB
     Dosage: 1.3 MG/M2, CYCLIC
     Route: 058
     Dates: start: 20171110, end: 20171110
  3. VELCADE [Suspect]
     Active Substance: BORTEZOMIB
     Dosage: 1.8 MG, UNK
     Route: 058
     Dates: start: 20171110, end: 20171114
  4. MELPHALAN. [Suspect]
     Active Substance: MELPHALAN
     Indication: PLASMA CELL LEUKAEMIA
     Dosage: 14 MG,QD
     Route: 065
     Dates: start: 20171103, end: 20171106
  5. MELPHALAN. [Suspect]
     Active Substance: MELPHALAN
     Dosage: 1 UNIT DOSE, CYCLIC (CYCLE 1, VMP REGIMEN)
     Route: 065
  6. ALLOPURINOL. [Suspect]
     Active Substance: ALLOPURINOL
     Dosage: 300 MG, QD
     Route: 065
     Dates: start: 20171120
  7. VELCADE [Suspect]
     Active Substance: BORTEZOMIB
     Dosage: 1.8 MG, UNK
     Route: 058
     Dates: start: 20171107, end: 201711
  8. ALLOPURINOL. [Suspect]
     Active Substance: ALLOPURINOL
     Dosage: 30 MG, 1X/DAY
     Dates: start: 20171120
  9. PREDNISONE. [Suspect]
     Active Substance: PREDNISONE
     Indication: PLASMA CELL LEUKAEMIA
     Dosage: 70 MG, QD
     Route: 065
     Dates: start: 20171103, end: 20171103
  10. PREDNISONE. [Suspect]
     Active Substance: PREDNISONE
     Dosage: UNK
     Route: 065
     Dates: start: 20171106, end: 20171106
  11. BACTERIOSTATIC SODIUM CHLORIDE [Suspect]
     Active Substance: SODIUM CHLORIDE
     Dosage: 1 UNIT DOSE, CYCLIC (DAY 4 OF CYCLE 2, VMP REGIMEN, COMPOUNDED WITH BORTEZOMIB)
     Dates: start: 20171106, end: 20171106
  12. BACTERIOSTATIC SODIUM CHLORIDE [Suspect]
     Active Substance: SODIUM CHLORIDE
     Dosage: UNK (SOLUTION)
     Route: 041
     Dates: start: 20171110, end: 20171114
  13. DEXAMETHASONE SODIUM PHOSPHATE. [Suspect]
     Active Substance: DEXAMETHASONE SODIUM PHOSPHATE
     Dosage: 20 MG, 1X/DAY
     Dates: start: 20171102, end: 20171106
  14. ALLOPURINOL. [Suspect]
     Active Substance: ALLOPURINOL
     Dosage: 30 MG, QD
     Route: 065
     Dates: start: 20171104, end: 20171120
  15. PREDNISONE. [Suspect]
     Active Substance: PREDNISONE
     Dosage: 1 UNIT DOSE, CYCLIC (VMP REGIMEN)
  16. BACTERIOSTATIC SODIUM CHLORIDE [Suspect]
     Active Substance: SODIUM CHLORIDE
     Dosage: 1 UNIT DOSE, CYCLIC (DAY 8 OF CYCLE 2, VMP REGIMEN, COMPOUNDED WITH BORTEZOMIB)
     Dates: start: 20171110, end: 20171110
  17. VELCADE [Suspect]
     Active Substance: BORTEZOMIB
     Indication: PLASMA CELL LEUKAEMIA
     Dosage: 1.8 MG/M2, CYCLIC (DAY 1 OF CYCLE 2, VMP REGIMEN, COMPOUNDED WITH SODIUM CHLORIDE)
     Route: 058
     Dates: start: 20171103, end: 20171103
  18. VELCADE [Suspect]
     Active Substance: BORTEZOMIB
     Dosage: 1 UNIT DOSE, CYCLIC (CYCLE 1, VMP REGIMEN)
     Route: 058
     Dates: start: 2017, end: 2017
  19. FENTANYL/FENTANYL CITRATE [Suspect]
     Active Substance: FENTANYL
     Dosage: 12 UG, 1 HOUR
     Route: 062
     Dates: start: 20171108
  20. MELPHALAN. [Suspect]
     Active Substance: MELPHALAN
     Dosage: 14 MG, QD
     Route: 065
     Dates: start: 20171107, end: 20171110
  21. RAMIPRIL. [Concomitant]
     Active Substance: RAMIPRIL
     Dosage: 10 MG, OM (EVERY MORNING)
  22. METOCLOPRAMIDE. [Concomitant]
     Active Substance: METOCLOPRAMIDE
     Dosage: 10 MG, AS NEEDED (QDS PRN)
  23. BACTERIOSTATIC SODIUM CHLORIDE [Suspect]
     Active Substance: SODIUM CHLORIDE
     Indication: MEDICATION DILUTION
     Dosage: 1 UNIT DOSE, CYCLIC (DAY 1 OF CYCLE 2, VMP REGIMEN, COMPOUNDED WITH BORTEZOMIB)
     Route: 041
     Dates: start: 20171103, end: 20171106
  24. BENDROFLUMETHIAZIDE [Concomitant]
     Active Substance: BENDROFLUMETHIAZIDE
     Dosage: 2.5 MG, OM (EVERY MORNING)
  25. SERTRALINE [Concomitant]
     Active Substance: SERTRALINE HYDROCHLORIDE
     Dosage: 50 MG, OM (EVERY MORNING)
  26. OMEPRAZOLE. [Concomitant]
     Active Substance: OMEPRAZOLE
     Dosage: 20 MG, OM (EVERY MORNING)

REACTIONS (9)
  - Agitation [Not Recovered/Not Resolved]
  - Paranoia [Not Recovered/Not Resolved]
  - Disturbance in social behaviour [Recovered/Resolved]
  - Confusional state [Not Recovered/Not Resolved]
  - Abnormal behaviour [Not Recovered/Not Resolved]
  - Hallucination [Recovered/Resolved]
  - Emotional distress [Not Recovered/Not Resolved]
  - Off label use [Unknown]
  - Disorientation [Recovered/Resolved]

NARRATIVE: CASE EVENT DATE: 20171107
